FAERS Safety Report 20994705 (Version 1)
Quarter: 2022Q2

REPORT INFORMATION
  Report Type: Report from Study
  Country: US (occurrence: US)
  Receive Date: 20220622
  Receipt Date: 20220622
  Transmission Date: 20220721
  Serious: Yes (Hospitalization)
  Sender: FDA-Public Use
  Company Number: US-BAYER-2022A083801

PATIENT
  Age: 83 Year
  Sex: Female
  Weight: 58.503 kg

DRUGS (1)
  1. ADEMPAS [Suspect]
     Active Substance: RIOCIGUAT
     Indication: Pulmonary arterial hypertension
     Dosage: 0.5 MG, TID
     Route: 048
     Dates: start: 20220531

REACTIONS (4)
  - Blood pressure decreased [None]
  - Pallor [None]
  - Dizziness [None]
  - Syncope [None]

NARRATIVE: CASE EVENT DATE: 20220610
